FAERS Safety Report 8069207-9 (Version None)
Quarter: 2012Q1

REPORT INFORMATION
  Report Type: 
  Country: None (occurrence: None)
  Receive Date: 20120125
  Receipt Date: 20120118
  Transmission Date: 20120608
  Serious: Yes (Hospitalization)
  Sender: FDA-Public Use
  Company Number: US-BRISTOL-MYERS SQUIBB COMPANY-16096752

PATIENT
  Age: 63 Year
  Sex: Female

DRUGS (6)
  1. GLYBURIDE [Suspect]
     Indication: TYPE 2 DIABETES MELLITUS
  2. BLINDED: PLACEBO [Suspect]
     Indication: TYPE 2 DIABETES MELLITUS
     Dates: start: 20101009
  3. ASPIRIN [Concomitant]
  4. NIACIN [Concomitant]
  5. METFORMIN HCL [Suspect]
     Indication: TYPE 2 DIABETES MELLITUS
  6. BLINDED: SAXAGLIPTIN [Suspect]
     Indication: TYPE 2 DIABETES MELLITUS
     Dates: start: 20101009

REACTIONS (3)
  - ATAXIA [None]
  - HYPOGLYCAEMIA [None]
  - VISION BLURRED [None]
